FAERS Safety Report 9051090 (Version 2)
Quarter: 2013Q1

REPORT INFORMATION
  Report Type: Spontaneous
  Country: US (occurrence: US)
  Receive Date: 20130206
  Receipt Date: 20130226
  Transmission Date: 20140127
  Serious: Yes (Hospitalization)
  Sender: FDA-Public Use
  Company Number: US-GENZYME-CERZ-1002801

PATIENT
  Age: 52 None
  Sex: Female

DRUGS (1)
  1. CEREZYME [Suspect]
     Indication: GAUCHER^S DISEASE
     Dosage: 4400 U, Q2W
     Route: 042
     Dates: start: 19990731

REACTIONS (1)
  - Staphylococcal infection [Not Recovered/Not Resolved]
